FAERS Safety Report 7537440-8 (Version None)
Quarter: 2011Q2

REPORT INFORMATION
  Report Type: 
  Country: None (occurrence: None)
  Receive Date: 20110609
  Receipt Date: 20080826
  Transmission Date: 20111010
  Serious: Yes (Other)
  Sender: FDA-Public Use
  Company Number: US-BAYER-200813627NA

PATIENT
  Age: 49 Year
  Sex: Female
  Weight: 56.054 kg

DRUGS (22)
  1. EPOGEN [Concomitant]
  2. IRON W/VITAMINS NOS [Concomitant]
  3. ZEMPLAR [Concomitant]
  4. ANUSERT HC-1 [Concomitant]
  5. HEPARIN [Concomitant]
  6. PERCOCET [Concomitant]
  7. MAGNEVIST [Suspect]
     Indication: NUCLEAR MAGNETIC RESONANCE IMAGING
     Route: 042
     Dates: start: 20050919, end: 20050919
  8. FOSRENOL [Concomitant]
  9. FLUOCINONIDE [Concomitant]
  10. BACTROBAN [Concomitant]
  11. NIFEDIPINE [Concomitant]
  12. VENOFER [Concomitant]
  13. DILAUDID [Concomitant]
  14. MAGNEVIST [Suspect]
  15. OMNISCAN [Suspect]
     Indication: NUCLEAR MAGNETIC RESONANCE IMAGING
     Route: 042
     Dates: start: 20050919, end: 20050919
  16. COUMADIN [Concomitant]
  17. ACTIVASE [Concomitant]
  18. OMNISCAN [Suspect]
     Indication: ARTERIOGRAM
     Route: 042
     Dates: start: 20050412, end: 20050412
  19. HECTOROL [Concomitant]
  20. XANAX [Concomitant]
  21. MAGNEVIST [Suspect]
     Indication: ARTERIOGRAM
     Route: 042
     Dates: start: 20050412, end: 20050412
  22. HYDROCODONE BITARTRATE AND ACETAMINOPHEN [Concomitant]

REACTIONS (23)
  - MUSCLE CONTRACTURE [None]
  - JOINT CONTRACTURE [None]
  - ANXIETY [None]
  - SKIN LESION [None]
  - INJURY [None]
  - DERMATITIS ACNEIFORM [None]
  - SKIN TIGHTNESS [None]
  - PAIN [None]
  - EMOTIONAL DISTRESS [None]
  - RASH [None]
  - SKIN HYPERTROPHY [None]
  - SKIN HYPERPIGMENTATION [None]
  - SCAR [None]
  - DECREASED ACTIVITY [None]
  - SKIN EXFOLIATION [None]
  - FIBROSIS [None]
  - RASH PAPULAR [None]
  - OEDEMA [None]
  - DRY SKIN [None]
  - SKIN FISSURES [None]
  - NEPHROGENIC SYSTEMIC FIBROSIS [None]
  - GENERAL PHYSICAL HEALTH DETERIORATION [None]
  - LIVEDO RETICULARIS [None]
